FAERS Safety Report 7246246 (Version 2)
Quarter: 2013Q2

REPORT INFORMATION
  Report Type: Spontaneous
  Country: US (occurrence: US)
  Receive Date: 20100114
  Receipt Date: 20130528
  Transmission Date: 20140414
  Serious: Yes (Death)
  Sender: FDA-Public Use
  Company Number: US-PFIZER INC-2010001234

PATIENT
  Age: 62 Year
  Sex: Male

DRUGS (4)
  1. LORAZEPAM [Suspect]
     Dosage: UNK
     Route: 048
  2. ALPRAZOLAM [Suspect]
     Dosage: UNK
     Route: 048
  3. ZOLPIDEM [Suspect]
     Dosage: UNK
     Route: 048
  4. PHENOBARBITAL [Suspect]
     Dosage: UNK
     Route: 048

REACTIONS (1)
  - Completed suicide [Fatal]
